FAERS Safety Report 25608720 (Version 4)
Quarter: 2025Q3

REPORT INFORMATION
  Report Type: Spontaneous
  Country: US (occurrence: US)
  Receive Date: 20250726
  Receipt Date: 20250909
  Transmission Date: 20251021
  Serious: No
  Sender: JOHNSON AND JOHNSON
  Company Number: US-JNJFOC-20250730898

PATIENT
  Age: 20 Year
  Sex: Female
  Weight: 72 kg

DRUGS (6)
  1. SPRAVATO [Suspect]
     Active Substance: ESKETAMINE
     Indication: Depression
     Route: 045
     Dates: start: 20250522, end: 20250522
  2. SPRAVATO [Suspect]
     Active Substance: ESKETAMINE
     Route: 045
     Dates: start: 20250714, end: 20250714
  3. LEXAPRO [Concomitant]
     Active Substance: ESCITALOPRAM OXALATE
     Indication: Depression
     Route: 048
     Dates: start: 20240515
  4. AUVELITY [Concomitant]
     Active Substance: BUPROPION HYDROCHLORIDE\DEXTROMETHORPHAN HYDROBROMIDE
     Indication: Depression
     Dosage: 45-105 MG
     Route: 048
     Dates: start: 20230322
  5. PRAZOSIN [Concomitant]
     Active Substance: PRAZOSIN
     Indication: Insomnia
     Dates: start: 2025
  6. PRAZOSIN [Concomitant]
     Active Substance: PRAZOSIN
     Indication: Nightmare

REACTIONS (4)
  - Sedation [Unknown]
  - Feeling abnormal [Recovered/Resolved]
  - Taste disorder [Recovered/Resolved]
  - Drug ineffective [Unknown]

NARRATIVE: CASE EVENT DATE: 20250701
